FAERS Safety Report 5077805-X (Version None)
Quarter: 2006Q3

REPORT INFORMATION
  Report Type: 
  Country: None (occurrence: None)
  Receive Date: 20060810
  Receipt Date: 20060803
  Transmission Date: 20061208
  Serious: Yes (Hospitalization)
  Sender: FDA-Public Use
  Company Number: DE-MERCK-0608DEU00062

PATIENT
  Age: 84 Year
  Sex: Female
  Weight: 65 kg

DRUGS (3)
  1. FOSAMAX PLUS D [Suspect]
     Indication: OSTEOPOROSIS
     Route: 048
     Dates: start: 20060301
  2. COZAAR [Concomitant]
     Route: 048
  3. LORMETAZEPAM [Concomitant]
     Route: 048

REACTIONS (2)
  - CONVULSION [None]
  - MALAISE [None]
